FAERS Safety Report 25551270 (Version 1)
Quarter: 2025Q3

REPORT INFORMATION
  Report Type: Spontaneous
  Country: AU (occurrence: AU)
  Receive Date: 20250714
  Receipt Date: 20250714
  Transmission Date: 20251020
  Serious: Yes (Hospitalization)
  Sender: INTERCHEM
  Company Number: AU-HQ SPECIALTY-AU-2025INT000049

PATIENT

DRUGS (1)
  1. DEXMEDETOMIDINE HYDROCHLORIDE [Suspect]
     Active Substance: DEXMEDETOMIDINE HYDROCHLORIDE
     Indication: Anaesthesia
     Route: 047

REACTIONS (6)
  - Syncope [Unknown]
  - Bradycardia [Recovered/Resolved with Sequelae]
  - Cardiac arrest [Unknown]
  - Hypotension [Unknown]
  - Product use issue [Unknown]
  - Product use in unapproved indication [Unknown]
